FAERS Safety Report 7913551-X (Version None)
Quarter: 2011Q4

REPORT INFORMATION
  Report Type: 
  Country: None (occurrence: None)
  Receive Date: 20111110
  Receipt Date: 20111104
  Transmission Date: 20120403
  Serious: Yes (Death)
  Sender: FDA-Public Use
  Company Number: 2008-185204-NL

PATIENT
  Age: 31 Year
  Sex: Female
  Weight: 52.2 kg

DRUGS (2)
  1. NUVARING [Suspect]
     Indication: CONTRACEPTION
     Dosage: 1 DF, VAG
     Route: 067
     Dates: start: 20080122, end: 20080201
  2. NUVARING [Suspect]
     Indication: MENSTRUATION IRREGULAR
     Dosage: 1 DF, VAG
     Route: 067
     Dates: start: 20080122, end: 20080201

REACTIONS (15)
  - PNEUMONIA [None]
  - PLEURAL EFFUSION [None]
  - PULMONARY OEDEMA [None]
  - PLEURITIC PAIN [None]
  - PULMONARY ARTERIAL HYPERTENSION [None]
  - CARDIOMEGALY [None]
  - CHOLELITHIASIS [None]
  - EMBOLISM [None]
  - RENAL CYST [None]
  - LUNG CONSOLIDATION [None]
  - RESPIRATORY FAILURE [None]
  - ATELECTASIS [None]
  - PULMONARY EMBOLISM [None]
  - HEPATOMEGALY [None]
  - NEPHROLITHIASIS [None]
